FAERS Safety Report 10945132 (Version 1)
Quarter: 2015Q1

REPORT INFORMATION
  Report Type: Spontaneous
  Country: US (occurrence: US)
  Receive Date: 20150323
  Receipt Date: 20150323
  Transmission Date: 20150721
  Serious: No
  Sender: FDA-Public Use
  Company Number: US-BAYER-2015-038032

PATIENT
  Age: 50 Year
  Sex: Female

DRUGS (1)
  1. BETASERON [Suspect]
     Active Substance: INTERFERON BETA-1B
     Indication: MULTIPLE SCLEROSIS
     Dosage: 0.25 ?G, QOD
     Route: 058

REACTIONS (7)
  - Paraesthesia [None]
  - Dizziness postural [None]
  - Myalgia [None]
  - Burning sensation [None]
  - Headache [None]
  - Influenza like illness [None]
  - Fatigue [None]

NARRATIVE: CASE EVENT DATE: 201503
